FAERS Safety Report 15290822 (Version 2)
Quarter: 2019Q4

REPORT INFORMATION
  Report Type: Spontaneous
  Country: GB (occurrence: GB)
  Receive Date: 20180817
  Receipt Date: 20191119
  Transmission Date: 20200122
  Serious: Yes (Disabling)
  Sender: FDA-Public Use
  Company Number: GB-TEVA-2018-GB-941933

PATIENT
  Age: 55 Year
  Sex: Male
  Weight: 105 kg

DRUGS (8)
  1. OMEPRAZOLE. [Suspect]
     Active Substance: OMEPRAZOLE
     Route: 048
     Dates: start: 20170930
  2. BRISTOL LABS RAMIPRIL [Concomitant]
     Active Substance: RAMIPRIL
  3. OMEPRAZOLE. [Suspect]
     Active Substance: OMEPRAZOLE
     Indication: GASTROOESOPHAGEAL REFLUX DISEASE
     Route: 048
     Dates: start: 20170920, end: 20170929
  4. DIPYRIDAMOLE. [Concomitant]
     Active Substance: DIPYRIDAMOLE
  5. AMLODIPINE [Concomitant]
     Active Substance: AMLODIPINE BESYLATE
  6. TEVA UK ATORVASTATIN [Concomitant]
     Active Substance: ATORVASTATIN
  7. ACETYLSALICYLIC ACID [Concomitant]
     Active Substance: ASPIRIN
  8. EZETIMIBE. [Concomitant]
     Active Substance: EZETIMIBE

REACTIONS (3)
  - Pain [Recovered/Resolved]
  - Suicidal ideation [Recovered/Resolved]
  - Insomnia [Recovered/Resolved]

NARRATIVE: CASE EVENT DATE: 20171001
